FAERS Safety Report 26182690 (Version 2)
Quarter: 2025Q4

REPORT INFORMATION
  Report Type: Spontaneous
  Country: GB (occurrence: GB)
  Receive Date: 20251221
  Receipt Date: 20251230
  Transmission Date: 20260117
  Serious: Yes (Hospitalization, Other)
  Sender: ACCORD
  Company Number: GB-Accord-514319

PATIENT
  Age: 59 Year
  Sex: Female
  Weight: 63.0 kg

DRUGS (12)
  1. FLUOROURACIL [Suspect]
     Active Substance: FLUOROURACIL
     Indication: Colon cancer stage IV
     Dosage: 3950 MG/M2, Q2WEEKS, IV USE (CYCLE DAY 1 AND 15)
     Route: 042
     Dates: start: 20250702, end: 20250703
  2. IRINOTECAN [Suspect]
     Active Substance: IRINOTECAN
     Indication: Colon cancer stage IV
     Dosage: 300 MG/M2, Q2WEEKS, IV USE (CYCLE DAY 1AND 15)
     Route: 042
     Dates: start: 20250702, end: 20250702
  3. LEUCOVORIN [Concomitant]
     Active Substance: LEUCOVORIN\LEUCOVORIN CALCIUM
     Indication: Colon cancer stage IV
     Dosage: 350 MG/M2, Q2WEEKS, IV USE (CYCLE DAY 1 AND 15)
     Route: 042
     Dates: start: 20250702, end: 20250702
  4. BISOPROLOL [Concomitant]
     Active Substance: BISOPROLOL
     Dates: start: 202101
  5. ESTRADIOL [Concomitant]
     Active Substance: ESTRADIOL
     Dates: start: 202101
  6. UTROGESTRAN [Concomitant]
     Dates: start: 202101
  7. IRINOTECAN [Suspect]
     Active Substance: IRINOTECAN
     Indication: Colon cancer stage IV
     Dosage: 300 MG/M2, Q2WEEKS, IV USE (CYCLE DAY 1 AND 15)
     Route: 042
     Dates: start: 20251022, end: 20251022
  8. FLUOROURACIL [Suspect]
     Active Substance: FLUOROURACIL
     Indication: Colon cancer stage IV
     Dosage: 3950 MG/M2, Q2WEEKS, IV USE (CYCLE DAY 1 AND 15)
     Route: 042
     Dates: start: 20251022, end: 20251023
  9. LEUCOVORIN [Concomitant]
     Active Substance: LEUCOVORIN\LEUCOVORIN CALCIUM
     Indication: Colon cancer stage IV
     Dosage: 350 MG/M2, Q2WEEKS, IV USE (CYCLE DAY 1 AND 15)
     Route: 042
     Dates: start: 20251022, end: 20251022
  10. FLUOROURACIL [Suspect]
     Active Substance: FLUOROURACIL
     Indication: Colon cancer stage IV
     Dosage: 3950 MG/M2, Q2WEEKS, IV USE (CYCLE DAY 1 AND 15)
     Route: 042
     Dates: start: 20251112, end: 20251113
  11. IRINOTECAN [Suspect]
     Active Substance: IRINOTECAN
     Indication: Colon cancer stage IV
     Dosage: 220 MG/M2, Q2WEEKS, IV USE (CYCLE DAY 1 AND 15)
     Route: 042
     Dates: start: 20251112, end: 20251112
  12. LEUCOVORIN [Concomitant]
     Active Substance: LEUCOVORIN\LEUCOVORIN CALCIUM
     Indication: Colon cancer stage IV
     Dosage: 250 MG/M2, Q2WEEKS, IV USE (CYCLE DAY 1 AND 15)
     Route: 042
     Dates: start: 20251112, end: 20251112

REACTIONS (3)
  - Diarrhoea [Recovered/Resolved]
  - Terminal ileitis [Unknown]
  - Neutropenia [Recovered/Resolved]

NARRATIVE: CASE EVENT DATE: 20251101
